FAERS Safety Report 5050478-8 (Version None)
Quarter: 2006Q3

REPORT INFORMATION
  Report Type: 
  Country: None (occurrence: None)
  Receive Date: 20060707
  Receipt Date: 20060621
  Transmission Date: 20061208
  Serious: Yes (Other)
  Sender: FDA-Public Use
  Company Number: 111135ISR

PATIENT
  Age: 41 Year
  Sex: Male

DRUGS (4)
  1. METHYLPREDNISOLONE [Suspect]
  2. PREDNISONE [Suspect]
  3. CYCLOSPORINE [Concomitant]
  4. MYCOPHENOLATE MOFETIL [Concomitant]

REACTIONS (7)
  - AMERICAN TRYPANOSOMIASIS [None]
  - BLOOD CREATININE INCREASED [None]
  - CONDITION AGGRAVATED [None]
  - KIDNEY FIBROSIS [None]
  - LYMPHOCYTIC INFILTRATION [None]
  - NEPHRITIS INTERSTITIAL [None]
  - RENAL TUBULAR ATROPHY [None]
